FAERS Safety Report 9856786 (Version 2)
Quarter: 2014Q1

REPORT INFORMATION
  Report Type: Spontaneous
  Country: US (occurrence: US)
  Receive Date: 20140130
  Receipt Date: 20140130
  Transmission Date: 20141002
  Serious: Yes (Disabling)
  Sender: FDA-Public Use
  Company Number: US-GE HEALTHCARE MEDICAL DIAGNOSTICS-OSCN-PR-0809S-0530

PATIENT
  Age: 48 Year
  Sex: Female

DRUGS (7)
  1. OMNISCAN [Suspect]
     Indication: PRODUCT USED FOR UNKNOWN INDICATION
     Route: 042
     Dates: start: 20041022, end: 20041022
  2. OMNISCAN [Suspect]
     Dates: start: 20041028, end: 20041028
  3. OMNISCAN [Suspect]
     Dates: start: 20041031, end: 20041031
  4. OMNISCAN [Suspect]
     Dates: start: 20041229, end: 20041229
  5. EPOGEN [Concomitant]
  6. PREDNISONE [Concomitant]
  7. IMURAN [Concomitant]

REACTIONS (1)
  - Nephrogenic systemic fibrosis [Not Recovered/Not Resolved]
